FAERS Safety Report 23321399 (Version 1)
Quarter: 2023Q4

REPORT INFORMATION
  Report Type: Spontaneous
  Country: LT (occurrence: LT)
  Receive Date: 20231220
  Receipt Date: 20231220
  Transmission Date: 20240109
  Serious: Yes (Other)
  Sender: FDA-Public Use
  Company Number: LT-PFIZER INC-202300414813

PATIENT
  Age: 28 Year
  Sex: Female

DRUGS (3)
  1. PAXLOVID [Suspect]
     Active Substance: NIRMATRELVIR\RITONAVIR
     Indication: COVID-19
     Dosage: NIRMATRELVIR 300 MG]/[RITONAVIR 100 MG]; 2X/DAY
     Route: 048
     Dates: start: 20231106, end: 20231109
  2. NEBIVOLOL [Concomitant]
     Active Substance: NEBIVOLOL
     Dosage: 5 MG, 1X/DAY
  3. LEVOTHYROXINE [Concomitant]
     Active Substance: LEVOTHYROXINE
     Dosage: 75 UG, 1X/DAY IN THE MORNING

REACTIONS (10)
  - Abdominal pain upper [Recovered/Resolved]
  - Hypotension [Recovered/Resolved]
  - Diarrhoea [Recovered/Resolved]
  - Tachycardia [Recovered/Resolved]
  - Abdominal pain [Recovered/Resolved]
  - Musculoskeletal chest pain [Unknown]
  - Back pain [Unknown]
  - Pancreatic enzymes increased [Recovering/Resolving]
  - Amylase increased [Unknown]
  - Lipase increased [Unknown]

NARRATIVE: CASE EVENT DATE: 20231101
